FAERS Safety Report 4709988-2 (Version None)
Quarter: 2005Q3

REPORT INFORMATION
  Report Type: 
  Country: None (occurrence: None)
  Receive Date: 20050708
  Receipt Date: 20050628
  Transmission Date: 20060218
  Serious: Yes (Hospitalization)
  Sender: FDA-Public Use
  Company Number: 200515999GDDC

PATIENT
  Age: 67 Year
  Sex: Male
  Weight: 47.63 kg

DRUGS (12)
  1. TAXOTERE [Suspect]
     Indication: NEOPLASM MALIGNANT
     Dosage: DOSE: 60 MG/M2 (86 MG)
     Route: 042
     Dates: start: 20050127, end: 20050331
  2. RADIATION THERAPY [Suspect]
     Indication: NEOPLASM MALIGNANT
     Dosage: DOSE: 1.8 GY/ TREATMENT
     Dates: start: 20050317, end: 20050402
  3. FLUOROURACIL [Suspect]
     Indication: NEOPLASM MALIGNANT
     Dosage: DOSE: 200 MG/M2 (286 MG TOTAL DOSE)
     Route: 042
     Dates: start: 20050129, end: 20050310
  4. CARBOPLATIN [Suspect]
     Indication: NEOPLASM MALIGNANT
     Dosage: DOSE: 5 AUC (431 MG TOTAL DOSE)
     Route: 042
     Dates: start: 20050127, end: 20050217
  5. PERCOCET [Concomitant]
     Dosage: DOSE: UNK
     Dates: start: 20050110, end: 20050217
  6. DECADRON [Concomitant]
     Dosage: DOSE: UNK
     Dates: start: 20050110
  7. KYTRIL [Concomitant]
     Dosage: DOSE: UNK
     Dates: start: 20050110
  8. ZOFRAN [Concomitant]
     Dosage: DOSE: UNK
     Dates: start: 20050202
  9. DURAGESIC-100 [Concomitant]
     Dosage: DOSE: UNK
     Dates: start: 20050331, end: 20050402
  10. PREVACID [Concomitant]
     Dosage: DOSE: UNK
     Dates: start: 20050403
  11. LOMOTIL [Concomitant]
     Dosage: DOSE: UNK
     Dates: start: 20050202
  12. COMPAZINE [Concomitant]
     Dosage: DOSE: UNK
     Dates: start: 20050202

REACTIONS (8)
  - ANAEMIA [None]
  - BLOOD POTASSIUM INCREASED [None]
  - CONVULSION [None]
  - DEHYDRATION [None]
  - DIARRHOEA [None]
  - ELECTROLYTE IMBALANCE [None]
  - HYPOKALAEMIA [None]
  - PNEUMONIA [None]
